FAERS Safety Report 6855959-X (Version None)
Quarter: 2010Q3

REPORT INFORMATION
  Report Type: 
  Country: None (occurrence: None)
  Receive Date: 20100719
  Receipt Date: 20100715
  Transmission Date: 20110219
  Serious: Yes (Other)
  Sender: FDA-Public Use
  Company Number: ES-ROXANE LABORATORIES, INC.-2010-RO-00854RO

PATIENT
  Age: 40 Year
  Sex: Male

DRUGS (13)
  1. OXCARBAZEPINE [Suspect]
     Indication: MOOD SWINGS
     Dosage: 300 MG
  2. OXCARBAZEPINE [Suspect]
     Indication: RESTLESSNESS
     Dosage: 1800 MG
  3. OXCARBAZEPINE [Suspect]
     Dosage: 600 MG
  4. OXCARBAZEPINE [Suspect]
     Dosage: 900 MG
  5. OXCARBAZEPINE [Suspect]
     Dosage: 600 MG
  6. QUETIAPINE [Suspect]
     Indication: SCHIZOPHRENIA, PARANOID TYPE
     Dosage: 600 MG
  7. GABAPENTIN [Suspect]
     Indication: SCHIZOPHRENIA, PARANOID TYPE
     Dosage: 900 MG
  8. GABAPENTIN [Suspect]
     Dosage: 1800 MG
  9. GABAPENTIN [Suspect]
     Dosage: 1600 MG
  10. LEVOMEPROMAZINE [Suspect]
     Indication: SCHIZOPHRENIA, PARANOID TYPE
     Dosage: 100 MG
  11. CLORAZEPATE DIPOTASSIUM [Suspect]
     Indication: SCHIZOPHRENIA, PARANOID TYPE
     Dosage: 150 MG
  12. HALOPERIDOL [Suspect]
     Indication: DELUSION
     Dosage: 8 MG
  13. HALOPERIDOL [Suspect]
     Indication: GENERAL SYMPTOM

REACTIONS (4)
  - ANXIETY [None]
  - HYPONATRAEMIA [None]
  - SCHIZOPHRENIA [None]
  - SCHIZOPHRENIA, PARANOID TYPE [None]
